FAERS Safety Report 18714004 (Version 1)
Quarter: 2021Q1

REPORT INFORMATION
  Report Type: Spontaneous
  Country: US (occurrence: US)
  Receive Date: 20210107
  Receipt Date: 20210107
  Transmission Date: 20210419
  Serious: Yes (Other)
  Sender: FDA-Public Use
  Company Number: US-MYLANLABS-2020M1106891

PATIENT
  Age: 83 Year
  Sex: Male

DRUGS (2)
  1. CARBIDOPA AND LEVODOPA [Concomitant]
     Active Substance: CARBIDOPA\LEVODOPA
     Dosage: UNK UNK, Q4H, 6 TIMES A DAY
  2. CARBIDOPA AND LEVODOPA EXTENDED?RELEASE TABLETS [Suspect]
     Active Substance: CARBIDOPA\LEVODOPA
     Indication: PARKINSON^S DISEASE
     Dosage: UNK UNK, Q3H,6 TABLETS DAILY ONE EVERY 3 HOURS
     Route: 048
     Dates: start: 20201225

REACTIONS (3)
  - Dysstasia [Not Recovered/Not Resolved]
  - Therapeutic product effect increased [Not Recovered/Not Resolved]
  - Aggression [Not Recovered/Not Resolved]
